FAERS Safety Report 6476058-5 (Version None)
Quarter: 2009Q4

REPORT INFORMATION
  Report Type: 
  Country: None (occurrence: None)
  Receive Date: 20091204
  Receipt Date: 20091127
  Transmission Date: 20100525
  Serious: Yes (Hospitalization)
  Sender: FDA-Public Use
  Company Number: ES-AMGEN-UK276015

PATIENT
  Sex: Male

DRUGS (4)
  1. PANITUMUMAB [Suspect]
     Indication: COLORECTAL CANCER
     Route: 042
     Dates: start: 20071108
  2. FLUOROURACIL [Suspect]
  3. FOLINIC ACID [Suspect]
  4. OXALIPLATIN [Suspect]
     Route: 042

REACTIONS (4)
  - DIARRHOEA [None]
  - GASTROENTERITIS [None]
  - GASTROINTESTINAL TOXICITY [None]
  - VOMITING [None]
